FAERS Safety Report 8097583-X (Version None)
Quarter: 2012Q1

REPORT INFORMATION
  Report Type: 
  Country: None (occurrence: None)
  Receive Date: 20120128
  Receipt Date: 20110622
  Transmission Date: 20120608
  Serious: No
  Sender: FDA-Public Use
  Company Number: US-ABBOTT-10P-163-0668084-00

PATIENT
  Age: 27 Year
  Sex: Male

DRUGS (6)
  1. HUMIRA [Suspect]
     Indication: PSORIASIS
     Dates: start: 20100301, end: 20100901
  2. HUMIRA [Suspect]
  3. CELEBREX [Concomitant]
     Indication: PRODUCT USED FOR UNKNOWN INDICATION
     Dosage: STOPPED WHILE ON CYCLOSPORINE TABS PER DOCTOR INSTRUCTION
  4. ULTRAM [Concomitant]
     Indication: PRODUCT USED FOR UNKNOWN INDICATION
     Route: 048
  5. ACETAMINOPHEN [Concomitant]
     Indication: PRODUCT USED FOR UNKNOWN INDICATION
  6. CLOBETASOL PROPIONATE [Concomitant]
     Indication: PRODUCT USED FOR UNKNOWN INDICATION
     Route: 061

REACTIONS (9)
  - RASH PAPULAR [None]
  - ARTHROPATHY [None]
  - RASH PRURITIC [None]
  - PSORIASIS [None]
  - COLITIS ULCERATIVE [None]
  - RASH [None]
  - RECTAL HAEMORRHAGE [None]
  - RASH ERYTHEMATOUS [None]
  - CROHN'S DISEASE [None]
